FAERS Safety Report 18604153 (Version 1)
Quarter: 2020Q4

REPORT INFORMATION
  Report Type: Spontaneous
  Country: US (occurrence: US)
  Receive Date: 20201211
  Receipt Date: 20201211
  Transmission Date: 20210114
  Serious: Yes (Hospitalization)
  Sender: FDA-Public Use
  Company Number: US-BIOVITRUM-2020US7243

PATIENT
  Sex: Male
  Weight: 5.4 kg

DRUGS (6)
  1. SYNAGIS [Suspect]
     Active Substance: PALIVIZUMAB
     Indication: VENTRICULAR SEPTAL DEFECT
     Dosage: 100MG/1ML VL LIQUID
     Route: 030
     Dates: start: 202011
  2. SYNAGIS [Suspect]
     Active Substance: PALIVIZUMAB
     Indication: PATENT DUCTUS ARTERIOSUS
  3. SYNAGIS [Suspect]
     Active Substance: PALIVIZUMAB
     Indication: GENERAL PHYSICAL HEALTH DETERIORATION
  4. SYNAGIS [Suspect]
     Active Substance: PALIVIZUMAB
     Indication: COARCTATION OF THE AORTA
  5. SYNAGIS [Suspect]
     Active Substance: PALIVIZUMAB
     Indication: AORTA HYPOPLASIA
  6. SYNAGIS [Suspect]
     Active Substance: PALIVIZUMAB
     Indication: CONGENITAL AORTIC ANOMALY

REACTIONS (2)
  - Cardiac procedure complication [Unknown]
  - Off label use [Unknown]
